FAERS Safety Report 17611412 (Version 1)
Quarter: 2020Q2

REPORT INFORMATION
  Report Type: Spontaneous
  Country: US (occurrence: US)
  Receive Date: 20200401
  Receipt Date: 20200401
  Transmission Date: 20200713
  Serious: Yes (Other)
  Sender: FDA-Public Use
  Company Number: None

PATIENT
  Age: 69 Year
  Sex: Female
  Weight: 78.75 kg

DRUGS (14)
  1. CPAP MACHINE [Concomitant]
  2. LIPIT OR [Concomitant]
  3. LEVALBUTEROL. [Concomitant]
     Active Substance: LEVALBUTEROL
  4. ALLEGRA [Concomitant]
     Active Substance: FEXOFENADINE HYDROCHLORIDE
  5. HYZAAR [Concomitant]
     Active Substance: HYDROCHLOROTHIAZIDE\LOSARTAN POTASSIUM
  6. ESTRADIOL VAGINAL INSERTS [Suspect]
     Active Substance: ESTRADIOL
     Indication: PROPHYLAXIS URINARY TRACT INFECTION
     Dosage: ?          QUANTITY:1 TABLET(S);OTHER FREQUENCY:2 TIMES PER WEEK;?
     Route: 067
  7. TOPIRAMATE. [Concomitant]
     Active Substance: TOPIRAMATE
  8. CYMBALTA [Concomitant]
     Active Substance: DULOXETINE HYDROCHLORIDE
  9. FOLIC ACID. [Concomitant]
     Active Substance: FOLIC ACID
  10. AMLODOPINE [Concomitant]
     Active Substance: AMLODIPINE BESYLATE
  11. VITAMIN D3 [Concomitant]
     Active Substance: CHOLECALCIFEROL
  12. ESTRADIOL VAGINAL INSERTS [Suspect]
     Active Substance: ESTRADIOL
     Indication: ATROPHIC VULVOVAGINITIS
     Dosage: ?          QUANTITY:1 TABLET(S);OTHER FREQUENCY:2 TIMES PER WEEK;?
     Route: 067
  13. SINGULAIR [Concomitant]
     Active Substance: MONTELUKAST SODIUM
  14. COQ10 [Concomitant]
     Active Substance: UBIDECARENONE

REACTIONS (4)
  - Drug ineffective [None]
  - Product solubility abnormal [None]
  - Urinary tract infection [None]
  - Product substitution issue [None]

NARRATIVE: CASE EVENT DATE: 20200218
